FAERS Safety Report 19666137 (Version 1)
Quarter: 2021Q3

REPORT INFORMATION
  Report Type: Spontaneous
  Country: US (occurrence: US)
  Receive Date: 20210805
  Receipt Date: 20210805
  Transmission Date: 20211014
  Serious: No
  Sender: FDA-Public Use
  Company Number: None

PATIENT
  Age: 80 Year
  Sex: Female
  Weight: 67.6 kg

DRUGS (20)
  1. LASIX [Concomitant]
     Active Substance: FUROSEMIDE
  2. VITAMIN D [Concomitant]
     Active Substance: VITAMIN D NOS
  3. PROMETHAZINE [Concomitant]
     Active Substance: PROMETHAZINE HYDROCHLORIDE
  4. ALLEGRA [Concomitant]
     Active Substance: FEXOFENADINE HYDROCHLORIDE
  5. AMIODARONE [Concomitant]
     Active Substance: AMIODARONE
  6. POTASSIUM GLUCONATE [Concomitant]
     Active Substance: POTASSIUM GLUCONATE
  7. DIAZEPAM. [Concomitant]
     Active Substance: DIAZEPAM
  8. LIPITOR [Concomitant]
     Active Substance: ATORVASTATIN CALCIUM
  9. MELATONIN [Concomitant]
     Active Substance: MELATONIN
  10. ASPIRIN. [Concomitant]
     Active Substance: ASPIRIN
  11. EFFIENT [Concomitant]
     Active Substance: PRASUGREL HYDROCHLORIDE
  12. IPRATROPIUM 0.06% NASAL [Concomitant]
  13. PAZEO 0.7% OPHTHALMIC [Concomitant]
  14. MYRBETRIQ [Concomitant]
     Active Substance: MIRABEGRON
  15. MUPIROCIN 2% CREAM [Concomitant]
     Active Substance: MUPIROCIN
  16. ZYRTEC [Concomitant]
     Active Substance: CETIRIZINE HYDROCHLORIDE
  17. MAGNESIUM [Concomitant]
     Active Substance: MAGNESIUM
  18. FETZIMA [Concomitant]
     Active Substance: LEVOMILNACIPRAN HYDROCHLORIDE
  19. EMGALITY [Suspect]
     Active Substance: GALCANEZUMAB-GNLM
     Indication: MIGRAINE
     Route: 058
     Dates: start: 20210312, end: 20210612
  20. LISINOPRIL. [Concomitant]
     Active Substance: LISINOPRIL

REACTIONS (1)
  - Memory impairment [None]

NARRATIVE: CASE EVENT DATE: 20210701
